FAERS Safety Report 7437904-1 (Version None)
Quarter: 2011Q2

REPORT INFORMATION
  Report Type: 
  Country: None (occurrence: None)
  Receive Date: 20110426
  Receipt Date: 20110420
  Transmission Date: 20111010
  Serious: Yes (Hospitalization)
  Sender: FDA-Public Use
  Company Number: B0714348A

PATIENT
  Age: 81 Year
  Sex: Female

DRUGS (11)
  1. SOLUPRED [Suspect]
     Indication: ASTHMA
     Route: 048
  2. TERBUTALINE [Concomitant]
     Indication: RESPIRATORY DISTRESS
     Dates: start: 20110315
  3. ELISOR [Suspect]
     Indication: HYPERCHOLESTEROLAEMIA
     Route: 048
  4. DILTIAZEM HCL [Suspect]
     Route: 048
  5. PULMICORT [Suspect]
     Route: 055
  6. BUDESONIDE [Suspect]
     Route: 055
  7. IPRATROPIUM BROMIDE [Concomitant]
     Indication: RESPIRATORY DISTRESS
     Dates: start: 20110315
  8. VENTOLIN [Suspect]
     Indication: PRODUCT USED FOR UNKNOWN INDICATION
     Route: 055
  9. PREVISCAN [Suspect]
     Route: 048
  10. LASIX [Suspect]
     Route: 048
  11. TRIATEC [Suspect]
     Route: 048

REACTIONS (6)
  - INTESTINAL OBSTRUCTION [None]
  - VOMITING [None]
  - ABDOMINAL RIGIDITY [None]
  - OEDEMATOUS PANCREATITIS [None]
  - ABDOMINAL PAIN [None]
  - FAECALOMA [None]
